FAERS Safety Report 21131854 (Version 2)
Quarter: 2022Q3

REPORT INFORMATION
  Report Type: Spontaneous
  Country: US (occurrence: US)
  Receive Date: 20220726
  Receipt Date: 20220812
  Transmission Date: 20221027
  Serious: Yes (Hospitalization)
  Sender: FDA-Public Use
  Company Number: US-INSMED, INC.-2022-02042-US

PATIENT
  Age: 57 Year
  Sex: Male

DRUGS (1)
  1. ARIKAYCE [Suspect]
     Active Substance: AMIKACIN
     Indication: Product used for unknown indication
     Dosage: 590 MILLIGRAM, QD
     Route: 055
     Dates: start: 20190103, end: 202207

REACTIONS (11)
  - Oxygen saturation decreased [Unknown]
  - Pallor [Unknown]
  - Respiratory rate increased [Unknown]
  - Condition aggravated [Unknown]
  - Hyperhidrosis [Unknown]
  - Epistaxis [Unknown]
  - Chest discomfort [Unknown]
  - Pyrexia [Unknown]
  - Cough [Unknown]
  - Oropharyngeal pain [Unknown]
  - Dysphonia [Unknown]

NARRATIVE: CASE EVENT DATE: 20220706
